FAERS Safety Report 17574038 (Version 2)
Quarter: 2020Q1

REPORT INFORMATION
  Report Type: Spontaneous
  Country: FR (occurrence: FR)
  Receive Date: 20200323
  Receipt Date: 20200330
  Transmission Date: 20200409
  Serious: Yes (Other)
  Sender: FDA-Public Use
  Company Number: FR-MYLANLABS-2020M1030661

PATIENT
  Age: 59 Year
  Sex: Male
  Weight: 86 kg

DRUGS (3)
  1. PREDNISONE. [Suspect]
     Active Substance: PREDNISONE
     Indication: PROSTATE CANCER
     Dosage: 10 MILLIGRAM, QD
     Route: 048
     Dates: start: 20190731, end: 20191116
  2. ZYTIGA [Suspect]
     Active Substance: ABIRATERONE ACETATE
     Indication: PROSTATE CANCER
     Dosage: 1 GRAM, QD
     Route: 048
     Dates: start: 20190731, end: 20191116
  3. XGEVA [Concomitant]
     Active Substance: DENOSUMAB
     Indication: PROSTATE CANCER
     Dosage: 120 MILLIGRAM, MONTHLY
     Route: 058
     Dates: start: 20180801

REACTIONS (1)
  - Hepatocellular injury [Recovered/Resolved]

NARRATIVE: CASE EVENT DATE: 20191115
